FAERS Safety Report 20221746 (Version 1)
Quarter: 2021Q4

REPORT INFORMATION
  Report Type: Spontaneous
  Country: US (occurrence: US)
  Receive Date: 20211223
  Receipt Date: 20211223
  Transmission Date: 20220303
  Serious: Yes (Life-Threatening, Hospitalization, Other)
  Sender: FDA-Public Use
  Company Number: US-NOVARTISPH-NVSC2021US291319

PATIENT
  Age: 53 Year
  Sex: Male
  Weight: 73.94 kg

DRUGS (1)
  1. METFORMIN [Suspect]
     Active Substance: METFORMIN HYDROCHLORIDE
     Indication: Product used for unknown indication
     Dosage: 1000 MG
     Route: 065
     Dates: start: 2019

REACTIONS (9)
  - Apparent death [Unknown]
  - Pancreatitis acute [Unknown]
  - Coma [Unknown]
  - Renal failure [Unknown]
  - Amnesia [Unknown]
  - Intensive care unit acquired weakness [Unknown]
  - Pain [Unknown]
  - Hypotension [Unknown]
  - Illness [Unknown]

NARRATIVE: CASE EVENT DATE: 20210401
